FAERS Safety Report 19212197 (Version 2)
Quarter: 2021Q2

REPORT INFORMATION
  Report Type: Report from Study
  Country: US (occurrence: US)
  Receive Date: 20210504
  Receipt Date: 20210506
  Transmission Date: 20210717
  Serious: No
  Sender: FDA-Public Use
  Company Number: NVSC2021US095965

PATIENT
  Sex: Male

DRUGS (1)
  1. COSENTYX [Suspect]
     Active Substance: SECUKINUMAB
     Indication: PSORIATIC ARTHROPATHY
     Dosage: 150 MG, QMO (BENEATH THE SKIN USUALLY VIA INJECTION)
     Route: 058

REACTIONS (5)
  - Psoriasis [Unknown]
  - Stomatitis [Unknown]
  - Illness [Unknown]
  - Cheilitis [Unknown]
  - Oesophagitis [Unknown]
